FAERS Safety Report 18364948 (Version 1)
Quarter: 2020Q4

REPORT INFORMATION
  Report Type: Spontaneous
  Country: BR (occurrence: BR)
  Receive Date: 20201009
  Receipt Date: 20201009
  Transmission Date: 20210114
  Serious: Yes (Other)
  Sender: FDA-Public Use
  Company Number: BR-ASTRAZENECA-2020SF29784

PATIENT
  Sex: Female

DRUGS (3)
  1. CODEIN [Concomitant]
     Active Substance: CODEINE
     Indication: PAIN
  2. NOVALGIN (METAMIZOLE SODIUM) [Concomitant]
     Active Substance: METAMIZOLE SODIUM
     Indication: PAIN
  3. IRESSA [Suspect]
     Active Substance: GEFITINIB
     Indication: LUNG NEOPLASM MALIGNANT
     Route: 048
     Dates: start: 201902, end: 20201002

REACTIONS (8)
  - Decreased appetite [Not Recovered/Not Resolved]
  - Acne [Unknown]
  - Malignant neoplasm progression [Not Recovered/Not Resolved]
  - Malignant pleural effusion [Recovered/Resolved]
  - Pruritus [Unknown]
  - Pain [Not Recovered/Not Resolved]
  - Abdominal discomfort [Not Recovered/Not Resolved]
  - Weight decreased [Not Recovered/Not Resolved]

NARRATIVE: CASE EVENT DATE: 201902
